FAERS Safety Report 10697448 (Version 1)
Quarter: 2015Q1

REPORT INFORMATION
  Report Type: Spontaneous
  Country: US (occurrence: None)
  Receive Date: 20150107
  Receipt Date: 20150107
  Transmission Date: 20150721
  Serious: Yes (Disabling)
  Sender: FDA-Public Use
  Company Number: None

PATIENT
  Age: 54 Year
  Sex: Female
  Weight: 62.14 kg

DRUGS (1)
  1. ENALAPRIL MALEATE. [Suspect]
     Active Substance: ENALAPRIL MALEATE
     Indication: HYPERTENSION
     Dates: start: 20080712, end: 20140625

REACTIONS (6)
  - Chest pain [None]
  - Abdominal distension [None]
  - Fluid retention [None]
  - Deafness unilateral [None]
  - Paraesthesia oral [None]
  - Hypoaesthesia oral [None]
